FAERS Safety Report 4412395-3 (Version None)
Quarter: 2004Q2

REPORT INFORMATION
  Report Type: 
  Country: None (occurrence: None)
  Receive Date: 20040630
  Receipt Date: 20040511
  Transmission Date: 20050107
  Serious: No
  Sender: FDA-Public Use
  Company Number: 04P-163-0256494-00

PATIENT
  Age: 43 Year
  Sex: Female
  Weight: 131.0895 kg

DRUGS (6)
  1. HUMIRA [Suspect]
     Indication: RHEUMATOID ARTHRITIS
     Dosage: 40 MG, 1 IN 2 WK, SUBCUTANEOUS
     Route: 058
     Dates: start: 20030101
  2. PREDNISONE [Concomitant]
  3. METHOTREXATE [Concomitant]
  4. FOLIC ACID [Concomitant]
  5. LANSOPRAZOLE [Concomitant]
  6. CETIRIZINE HCL [Concomitant]

REACTIONS (5)
  - BLOOD PRESSURE INCREASED [None]
  - INJECTION SITE HAEMORRHAGE [None]
  - MOUTH ULCERATION [None]
  - MUSCLE SPASMS [None]
  - WEIGHT INCREASED [None]
